FAERS Safety Report 12535853 (Version 1)
Quarter: 2016Q3

REPORT INFORMATION
  Report Type: Spontaneous
  Country: US (occurrence: None)
  Receive Date: 20160706
  Receipt Date: 20160706
  Transmission Date: 20161109
  Serious: Yes (Other)
  Sender: FDA-Public Use
  Company Number: None

PATIENT
  Age: 66 Year
  Sex: Female
  Weight: 89.81 kg

DRUGS (14)
  1. VOLTAREN [Concomitant]
     Active Substance: DICLOFENAC SODIUM
  2. VITAMIN D [Concomitant]
     Active Substance: CHOLECALCIFEROL
  3. ALPRAZOLAM. [Concomitant]
     Active Substance: ALPRAZOLAM
  4. KRILL OIL [Concomitant]
     Active Substance: DIETARY SUPPLEMENT
  5. FISH OIL [Concomitant]
     Active Substance: FISH OIL
  6. MULTIVITAMIN [Concomitant]
     Active Substance: VITAMINS
  7. PREDNIZONE [Concomitant]
  8. ASPIRIN. [Concomitant]
     Active Substance: ASPIRIN
  9. LIPITOR [Suspect]
     Active Substance: ATORVASTATIN CALCIUM
     Indication: BLOOD CHOLESTEROL INCREASED
     Dosage: 1 PILL DAILY,  MOUTH
     Route: 048
     Dates: start: 20160602, end: 20160612
  10. LIPITOR [Suspect]
     Active Substance: ATORVASTATIN CALCIUM
     Indication: CONTUSION
     Dosage: 1 PILL DAILY,  MOUTH
     Route: 048
     Dates: start: 20160602, end: 20160612
  11. OMEPRAZOLE. [Concomitant]
     Active Substance: OMEPRAZOLE
  12. VITAMIN B12 [Concomitant]
     Active Substance: CYANOCOBALAMIN
  13. LIPITOR [Suspect]
     Active Substance: ATORVASTATIN CALCIUM
     Indication: BLOOD CALCIUM
     Dosage: 1 PILL DAILY,  MOUTH
     Route: 048
     Dates: start: 20160602, end: 20160612
  14. METOPROLOL. [Concomitant]
     Active Substance: METOPROLOL

REACTIONS (7)
  - Headache [None]
  - Swelling [None]
  - Fatigue [None]
  - Myalgia [None]
  - Contusion [None]
  - Pain in extremity [None]
  - Blister [None]

NARRATIVE: CASE EVENT DATE: 20160602
